FAERS Safety Report 4889660-9 (Version None)
Quarter: 2006Q1

REPORT INFORMATION
  Report Type: 
  Country: None (occurrence: None)
  Receive Date: 20060120
  Receipt Date: 20060104
  Transmission Date: 20060701
  Serious: Yes (Death, Hospitalization)
  Sender: FDA-Public Use
  Company Number: 2006PL000003

PATIENT
  Age: 34 Year
  Sex: Female

DRUGS (2)
  1. ALLOPURINOL [Suspect]
     Indication: HYPERURICAEMIA
  2. AMLODIPINE [Concomitant]

REACTIONS (16)
  - ALANINE AMINOTRANSFERASE INCREASED [None]
  - ASPARTATE AMINOTRANSFERASE INCREASED [None]
  - DRUG HYPERSENSITIVITY [None]
  - EOSINOPHILIA [None]
  - EPIDERMAL NECROSIS [None]
  - ERYTHEMA [None]
  - EYE SWELLING [None]
  - HAEMODIALYSIS [None]
  - LEUKOCYTOSIS [None]
  - PNEUMONIA [None]
  - PYREXIA [None]
  - RASH MACULO-PAPULAR [None]
  - RENAL CYST [None]
  - RENAL IMPAIRMENT [None]
  - SKIN DISORDER [None]
  - SWELLING FACE [None]
